FAERS Safety Report 9422693 (Version 1)
Quarter: 2013Q3

REPORT INFORMATION
  Report Type: Spontaneous
  Country: DZ (occurrence: DZ)
  Receive Date: 20130726
  Receipt Date: 20130726
  Transmission Date: 20140515
  Serious: Yes (Hospitalization)
  Sender: FDA-Public Use
  Company Number: DZ-SANOFI-AVENTIS-2013SA073864

PATIENT
  Age: 85 Year
  Sex: Female

DRUGS (1)
  1. LOVENOX [Suspect]
     Indication: FEMUR FRACTURE
     Route: 058
     Dates: start: 20130701, end: 20130712

REACTIONS (1)
  - Toxic epidermal necrolysis [Recovering/Resolving]
